FAERS Safety Report 4523560-9 (Version None)
Quarter: 2004Q4

REPORT INFORMATION
  Report Type: 
  Country: None (occurrence: None)
  Receive Date: 20041117
  Receipt Date: 20040921
  Transmission Date: 20050328
  Serious: Yes (Hospitalization)
  Sender: FDA-Public Use
  Company Number: US-JNJFOC-20040807336

PATIENT
  Age: 90 Year
  Sex: Female
  Weight: 45 kg

DRUGS (5)
  1. LEVAQUIN [Suspect]
     Indication: PNEUMONIA
     Dosage: 500 MG, INTRAVENOUS
     Route: 042
     Dates: start: 20040801, end: 20040801
  2. AMIODARONE (AMIODARONE) [Concomitant]
  3. VASOTEC (ENALAPRIL MALEATE) TABLETS [Concomitant]
  4. LASIX [Concomitant]
  5. ZYRTEC [Concomitant]

REACTIONS (3)
  - SYNCOPE [None]
  - TORSADE DE POINTES [None]
  - VENTRICULAR TACHYCARDIA [None]
